FAERS Safety Report 4940216-9 (Version None)
Quarter: 2006Q1

REPORT INFORMATION
  Report Type: 
  Country: None (occurrence: None)
  Receive Date: 20060310
  Receipt Date: 20060227
  Transmission Date: 20060701
  Serious: Yes (Hospitalization, Other)
  Sender: FDA-Public Use
  Company Number: US-MERCK-0603USA00597

PATIENT
  Age: 69 Year
  Sex: Male
  Weight: 107 kg

DRUGS (2)
  1. VIOXX [Suspect]
     Indication: ARTHRITIS
     Route: 048
     Dates: start: 20020602, end: 20030901
  2. VIOXX [Suspect]
     Route: 048
     Dates: start: 20020602, end: 20030901

REACTIONS (15)
  - ABASIA [None]
  - ARACHNOID CYST [None]
  - BENIGN PROSTATIC HYPERPLASIA [None]
  - CAROTID ARTERY STENOSIS [None]
  - CEREBROVASCULAR ACCIDENT [None]
  - COMA [None]
  - CONFUSIONAL STATE [None]
  - DEPRESSION [None]
  - DIFFICULTY IN WALKING [None]
  - ISCHAEMIA [None]
  - NEPHROLITHIASIS [None]
  - PAIN IN EXTREMITY [None]
  - RENAL FAILURE ACUTE [None]
  - RHEUMATOID ARTHRITIS [None]
  - URINARY TRACT INFECTION [None]
